FAERS Safety Report 23378665 (Version 1)
Quarter: 2024Q1

REPORT INFORMATION
  Report Type: Spontaneous
  Country: US (occurrence: US)
  Receive Date: 20240108
  Receipt Date: 20240108
  Transmission Date: 20240410
  Serious: Yes (Hospitalization)
  Sender: FDA-Public Use
  Company Number: US-JAZZ PHARMACEUTICALS-2023-US-020986

PATIENT
  Age: 12 Year
  Sex: Male
  Weight: 68 kg

DRUGS (2)
  1. RYLAZE [Suspect]
     Active Substance: ASPARAGINASE ERWINIA CHRYSANTHEMI (RECOMBINANT)-RYWN
     Indication: B-cell type acute leukaemia
     Dosage: 45 MILLIGRAM. MONDAY/WEDNESDAY
     Route: 030
  2. RYLAZE [Suspect]
     Active Substance: ASPARAGINASE ERWINIA CHRYSANTHEMI (RECOMBINANT)-RYWN
     Dosage: 90 MILLIGRAM, FRIDAYS
     Route: 030

REACTIONS (3)
  - Acidosis [Recovered/Resolved]
  - Hypertriglyceridaemia [Recovering/Resolving]
  - Hyperglycaemia [Recovering/Resolving]

NARRATIVE: CASE EVENT DATE: 20231011
